FAERS Safety Report 11566250 (Version 1)
Quarter: 2015Q3

REPORT INFORMATION
  Report Type: Report from Study
  Country: GB (occurrence: GB)
  Receive Date: 20150929
  Receipt Date: 20150929
  Transmission Date: 20151125
  Serious: Yes (Hospitalization)
  Sender: FDA-Public Use
  Company Number: GB-ROCHE-1638943

PATIENT
  Sex: Male

DRUGS (1)
  1. ESBRIET [Suspect]
     Active Substance: PIRFENIDONE
     Indication: IDIOPATHIC PULMONARY FIBROSIS
     Dosage: 7 TABLETS OF 267 MG A DAY
     Route: 048

REACTIONS (3)
  - Fatigue [Unknown]
  - Pneumothorax [Recovering/Resolving]
  - Frustration [Unknown]

NARRATIVE: CASE EVENT DATE: 20150710
